FAERS Safety Report 14359719 (Version 1)
Quarter: 2018Q1

REPORT INFORMATION
  Report Type: Spontaneous
  Country: US (occurrence: US)
  Receive Date: 20180105
  Receipt Date: 20180105
  Transmission Date: 20180509
  Serious: No
  Sender: FDA-Public Use
  Company Number: -SAAVPROD-BI2017BI014456

PATIENT
  Sex: Female

DRUGS (1)
  1. RANITIDINE HYDROCHLORIDE. [Suspect]
     Active Substance: RANITIDINE HYDROCHLORIDE
     Indication: PRODUCT USED FOR UNKNOWN INDICATION
     Dosage: FORM STRENGTH: 75 MG; FORMULATION: TABLET? ADMINISTRATION CORRECT? NR(NOT REPORTED)
     Route: 065

REACTIONS (2)
  - Headache [Unknown]
  - Flatulence [Unknown]
